FAERS Safety Report 9768369 (Version 1)
Quarter: 2013Q4

REPORT INFORMATION
  Report Type: Spontaneous
  Country: NO (occurrence: NO)
  Receive Date: 20131217
  Receipt Date: 20131217
  Transmission Date: 20140711
  Serious: Yes (Other)
  Sender: FDA-Public Use
  Company Number: PHHY2013NO144913

PATIENT
  Sex: Male

DRUGS (1)
  1. VENLAFAXINE [Suspect]
     Route: 064

REACTIONS (10)
  - Respiratory distress [Recovered/Resolved]
  - Hyporeflexia [Recovered/Resolved]
  - Dyskinesia [Recovered/Resolved]
  - Myoclonic epilepsy [Recovered/Resolved]
  - Convulsion [Recovered/Resolved]
  - Epilepsy [Recovered/Resolved]
  - Hypotonia [Recovered/Resolved]
  - Drug withdrawal syndrome neonatal [Recovered/Resolved]
  - Foetal exposure during pregnancy [Unknown]
  - Exposure during breast feeding [Unknown]
